FAERS Safety Report 17436276 (Version 1)
Quarter: 2020Q1

REPORT INFORMATION
  Report Type: Spontaneous
  Country: US (occurrence: US)
  Receive Date: 20200219
  Receipt Date: 20200219
  Transmission Date: 20200409
  Serious: No
  Sender: FDA-Public Use
  Company Number: US-LANTHEUS-LMI-2019-00067

PATIENT
  Age: 72 Year
  Sex: Female
  Weight: 76 kg

DRUGS (1)
  1. DEFINITY [Suspect]
     Active Substance: PERFLUTREN
     Indication: ECHOCARDIOGRAM
     Dosage: 2 ML, (1.5 ML DEFINITY PREPARED IN 8 ML NORMAL SALINE)
     Route: 040
     Dates: start: 20190204, end: 20190204

REACTIONS (2)
  - Pallor [Unknown]
  - Chills [Unknown]

NARRATIVE: CASE EVENT DATE: 20190204
